FAERS Safety Report 7035856-X (Version None)
Quarter: 2010Q4

REPORT INFORMATION
  Report Type: 
  Country: None (occurrence: None)
  Receive Date: 20101008
  Receipt Date: 20101004
  Transmission Date: 20110411
  Serious: Yes (Hospitalization, Other)
  Sender: FDA-Public Use
  Company Number: GB-BAXTER-2010BH025142

PATIENT
  Age: 5 Year
  Sex: Female
  Weight: 17 kg

DRUGS (5)
  1. CYCLOPHOSPHAMIDE [Suspect]
     Indication: GLOMERULONEPHRITIS ACUTE
     Route: 042
     Dates: start: 20100901, end: 20100901
  2. ALFACALCIDOL [Concomitant]
     Indication: RENAL IMPAIRMENT
     Route: 048
  3. CEPHALEXIN [Concomitant]
     Indication: URINARY TRACT INFECTION
     Route: 048
  4. PHENYTOIN [Concomitant]
     Indication: CONVULSION
     Route: 048
  5. PREDNISOLONE [Concomitant]
     Indication: NEPHRITIS
     Route: 048

REACTIONS (3)
  - HYPERPYREXIA [None]
  - PETECHIAE [None]
  - SWELLING FACE [None]
